FAERS Safety Report 23859298 (Version 2)
Quarter: 2024Q2

REPORT INFORMATION
  Report Type: Spontaneous
  Country: US (occurrence: US)
  Receive Date: 20240515
  Receipt Date: 20240610
  Transmission Date: 20240716
  Serious: No
  Sender: FDA-Public Use
  Company Number: US-Calliditas-2024CAL00704

PATIENT
  Age: 70 Year
  Sex: Male
  Weight: 76.8 kg

DRUGS (1)
  1. TARPEYO [Suspect]
     Active Substance: BUDESONIDE
     Indication: Chronic kidney disease
     Route: 048
     Dates: start: 20240410, end: 202405

REACTIONS (7)
  - Acne [Unknown]
  - Prescribed underdose [Recovered/Resolved]
  - Off label use [Recovered/Resolved]
  - Hypersensitivity [Unknown]
  - Pruritus [Not Recovered/Not Resolved]
  - Dry mouth [Unknown]
  - Sleep disorder [Not Recovered/Not Resolved]
